FAERS Safety Report 16275064 (Version 1)
Quarter: 2019Q2

REPORT INFORMATION
  Report Type: Spontaneous
  Country: US (occurrence: US)
  Receive Date: 20190503
  Receipt Date: 20190503
  Transmission Date: 20190711
  Serious: Yes (Hospitalization)
  Sender: FDA-Public Use
  Company Number: None

PATIENT
  Age: 61 Year
  Sex: Male
  Weight: 71.5 kg

DRUGS (2)
  1. LEUCOVORIN. [Concomitant]
     Active Substance: LEUCOVORIN
     Dates: start: 20181219, end: 20190501
  2. OXALIPLATIN. [Suspect]
     Active Substance: OXALIPLATIN
     Indication: COLON CANCER
     Dosage: ?          OTHER FREQUENCY:EVERY 2 WEEKS;?
     Route: 041
     Dates: start: 20181219, end: 20190501

REACTIONS (4)
  - Urinary incontinence [None]
  - Cardiac arrest [None]
  - Unresponsive to stimuli [None]
  - Infusion related reaction [None]

NARRATIVE: CASE EVENT DATE: 20190501
